FAERS Safety Report 9761498 (Version 1)
Quarter: 2013Q4

REPORT INFORMATION
  Report Type: Spontaneous
  Country: US (occurrence: US)
  Receive Date: 20131216
  Receipt Date: 20131216
  Transmission Date: 20140711
  Serious: No
  Sender: FDA-Public Use
  Company Number: US-BIOGENIDEC-2013BI108500

PATIENT
  Age: 53 Year
  Sex: Male

DRUGS (5)
  1. TECFIDERA [Suspect]
     Indication: MULTIPLE SCLEROSIS
     Route: 048
     Dates: start: 20131023
  2. CEFUROXIME AXETIL [Concomitant]
  3. NITROFURANTOIN MACROCRYSTAL [Concomitant]
  4. TERAZOSIN HCL [Concomitant]
  5. TRAMADOL HCL [Concomitant]

REACTIONS (1)
  - Gait disturbance [Unknown]
